FAERS Safety Report 5650762-0 (Version None)
Quarter: 2008Q1

REPORT INFORMATION
  Report Type: 
  Country: None (occurrence: None)
  Receive Date: 20080305
  Receipt Date: 20080225
  Transmission Date: 20080703
  Serious: Yes (Hospitalization)
  Sender: FDA-Public Use
  Company Number: PHEH2008US02340

PATIENT
  Age: 37 Year
  Sex: Female

DRUGS (2)
  1. SANDOSTATIN [Suspect]
     Indication: GASTROINTESTINAL HAEMORRHAGE
     Dosage: 1000 UG, ONCE/SINGLE
     Route: 042
     Dates: start: 20080225, end: 20080225
  2. ENDOSCOP [Suspect]

REACTIONS (2)
  - ACCIDENTAL OVERDOSE [None]
  - INCORRECT DOSE ADMINISTERED [None]
